FAERS Safety Report 6761135-1 (Version None)
Quarter: 2010Q2

REPORT INFORMATION
  Report Type: 
  Country: None (occurrence: None)
  Receive Date: 20100604
  Receipt Date: 20100527
  Transmission Date: 20101027
  Serious: Yes (Other)
  Sender: FDA-Public Use
  Company Number: 10-000802

PATIENT
  Age: 21 Year
  Sex: Female

DRUGS (1)
  1. LOESTRIN 1.5/30 [Suspect]

REACTIONS (2)
  - DYSPEPSIA [None]
  - SPLENIC CYST [None]
